FAERS Safety Report 6632090-X (Version None)
Quarter: 2010Q1

REPORT INFORMATION
  Report Type: 
  Country: None (occurrence: None)
  Receive Date: 20100312
  Receipt Date: 20100304
  Transmission Date: 20100710
  Serious: Yes (Other)
  Sender: FDA-Public Use
  Company Number: US-ROCHE-689580

PATIENT
  Sex: Male
  Weight: 64.9 kg

DRUGS (4)
  1. AVASTIN [Suspect]
     Dosage: ROUTE: IVP, START DATE: 5 MONTHS AGO, LAST INJECTION ON 10 JAN 2010
     Route: 042
     Dates: end: 20100110
  2. LISINOPRIL [Concomitant]
     Dosage: FREQUENCY: QD
  3. CALCIUM [Concomitant]
  4. VITAMINE D [Concomitant]
     Dosage: DRUG: VITAMIN D

REACTIONS (2)
  - HEART RATE IRREGULAR [None]
  - HYPERTENSION [None]
